FAERS Safety Report 5741702-4 (Version None)
Quarter: 2008Q2

REPORT INFORMATION
  Report Type: 
  Country: None (occurrence: None)
  Receive Date: 20080519
  Receipt Date: 20070530
  Transmission Date: 20081010
  Serious: No
  Sender: FDA-Public Use
  Company Number: US-BAYER-US-2007-020736

PATIENT
  Age: 83 Year
  Sex: Female

DRUGS (2)
  1. ULTRAVIST 300 [Suspect]
     Indication: ANGIOGRAM
     Dosage: UNIT DOSE: 150 ML
  2. ULTRAVIST 300 [Suspect]

REACTIONS (2)
  - THROAT TIGHTNESS [None]
  - URTICARIA [None]
